FAERS Safety Report 8555354-1 (Version None)
Quarter: 2012Q3

REPORT INFORMATION
  Report Type: 
  Country: None (occurrence: None)
  Receive Date: 20120731
  Receipt Date: 20110810
  Transmission Date: 20120928
  Serious: Yes (Hospitalization)
  Sender: FDA-Public Use
  Company Number: US-ASTRAZENECA-2011SE38750

PATIENT
  Age: 50 Year
  Sex: Male
  Weight: 86.2 kg

DRUGS (3)
  1. SEROQUEL [Suspect]
     Indication: BIPOLAR DISORDER
     Dosage: 400 MG, TWO TIMES A DAY
     Route: 048
  2. COGENTIN [Concomitant]
  3. RISPERDAL [Concomitant]

REACTIONS (3)
  - DIABETES MELLITUS [None]
  - MALAISE [None]
  - THERAPEUTIC RESPONSE UNEXPECTED [None]
